FAERS Safety Report 9912625 (Version 1)
Quarter: 2014Q1

REPORT INFORMATION
  Report Type: Spontaneous
  Country: CZ (occurrence: None)
  Receive Date: 20140212
  Receipt Date: 20140212
  Transmission Date: 20141002
  Serious: Yes (Life-Threatening, Hospitalization, Other)
  Sender: FDA-Public Use
  Company Number: FK201400412

PATIENT
  Age: 46 Year
  Sex: Female
  Weight: 62 kg

DRUGS (5)
  1. PACLITAXEL [Suspect]
     Indication: BREAST CANCER
     Route: 042
     Dates: start: 20131206, end: 20131206
  2. DEXAMETHASONE [Concomitant]
  3. ONDANSETRON HYDROCHLORIDE [Concomitant]
  4. BISULEPIN HYDROCHLORIDE [Concomitant]
  5. RANITAL [Concomitant]

REACTIONS (2)
  - Erythema [None]
  - Hot flush [None]
